FAERS Safety Report 6787356-X (Version None)
Quarter: 2010Q2

REPORT INFORMATION
  Report Type: 
  Country: None (occurrence: None)
  Receive Date: 20100623
  Receipt Date: 20061106
  Transmission Date: 20101027
  Serious: No
  Sender: FDA-Public Use
  Company Number: US-PFIZER INC-2006110892

PATIENT
  Sex: Female

DRUGS (4)
  1. DEPO-PROVERA [Suspect]
     Indication: CONTRACEPTION
     Dosage: FIRST INJECTION
     Route: 030
     Dates: start: 20051101, end: 20051101
  2. DEPO-PROVERA [Suspect]
     Dosage: SECOND INJECTION
     Route: 030
     Dates: start: 20060101, end: 20060101
  3. DEPO-PROVERA [Suspect]
     Dosage: MOST RECENT INJECTION
     Route: 030
     Dates: start: 20060725, end: 20060725
  4. MULTI-VITAMINS [Concomitant]

REACTIONS (1)
  - SMEAR CERVIX ABNORMAL [None]
